FAERS Safety Report 8669016 (Version 2)
Quarter: 2013Q1

REPORT INFORMATION
  Report Type: Spontaneous
  Country: US (occurrence: US)
  Receive Date: 20120717
  Receipt Date: 20130312
  Transmission Date: 20140127
  Serious: Yes (Hospitalization, Other)
  Sender: FDA-Public Use
  Company Number: US-PFIZER INC-2012170879

PATIENT
  Age: 75 Year
  Sex: Female
  Weight: 54.42 kg

DRUGS (6)
  1. LIPITOR [Suspect]
     Indication: BLOOD CHOLESTEROL INCREASED
     Dosage: 40 MG, DAILY
     Dates: start: 2006, end: 20120715
  2. LIPITOR [Suspect]
     Indication: BLOOD CHOLESTEROL ABNORMAL
     Dosage: 40 MG, DAILY
     Dates: start: 2008
  3. METFORMIN HCL [Suspect]
     Indication: DIABETES MELLITUS
     Dosage: UNK
  4. TOPROL XL [Concomitant]
     Indication: VENTRICULAR EXTRASYSTOLES
     Dosage: UNK
  5. BABY ASPIRIN [Concomitant]
     Dosage: UNK
  6. METFORMIN [Concomitant]
     Indication: DIABETES MELLITUS
     Dosage: 250 MG, DAILY

REACTIONS (8)
  - Thrombosis [Unknown]
  - Thrombosis [Unknown]
  - Thrombosis [Unknown]
  - Anaemia [Unknown]
  - Macular degeneration [Not Recovered/Not Resolved]
  - Visual field defect [Unknown]
  - White blood cell count decreased [Unknown]
  - Drug ineffective [Unknown]
